FAERS Safety Report 5163420-6 (Version None)
Quarter: 2006Q4

REPORT INFORMATION
  Report Type: 
  Country: None (occurrence: None)
  Receive Date: 20061204
  Receipt Date: 20060731
  Transmission Date: 20070319
  Serious: Yes (Hospitalization)
  Sender: FDA-Public Use
  Company Number: DE-ROCHE-457439

PATIENT
  Age: 3 Month
  Sex: Male
  Weight: 6 kg

DRUGS (1)
  1. LARIAM [Suspect]
     Indication: MALARIA PROPHYLAXIS
     Route: 048
     Dates: start: 20060730, end: 20060730

REACTIONS (9)
  - CONVULSION [None]
  - DYSPNOEA [None]
  - FATIGUE [None]
  - HAEMATOCRIT DECREASED [None]
  - HAEMOGLOBIN DECREASED [None]
  - PLATELET COUNT INCREASED [None]
  - RESPIRATORY DISORDER [None]
  - SALIVARY HYPERSECRETION [None]
  - VOMITING [None]
